FAERS Safety Report 8512560-X (Version None)
Quarter: 2012Q3

REPORT INFORMATION
  Report Type: 
  Country: None (occurrence: None)
  Receive Date: 20120716
  Receipt Date: 20120710
  Transmission Date: 20120928
  Serious: Yes (Other)
  Sender: FDA-Public Use
  Company Number: US-TEVA-347784USA

PATIENT
  Sex: Male
  Weight: 95.34 kg

DRUGS (7)
  1. LIDOCAINE HCL VISCOUS [Concomitant]
     Indication: TONGUE NEOPLASM MALIGNANT STAGE UNSPECIFIED
  2. ASPIRIN [Concomitant]
  3. AZILECT [Suspect]
     Indication: PARKINSON'S DISEASE
     Dosage: 1 MILLIGRAM;
     Route: 048
  4. REQUIP [Concomitant]
  5. NITROTAB [Concomitant]
     Indication: ANGINA PECTORIS
  6. STALEVO 100 [Concomitant]
  7. NEXIUM [Concomitant]

REACTIONS (3)
  - PALPITATIONS [None]
  - TONGUE NEOPLASM MALIGNANT STAGE UNSPECIFIED [None]
  - DIZZINESS [None]
